FAERS Safety Report 5445966-6 (Version None)
Quarter: 2007Q4

REPORT INFORMATION
  Report Type: 
  Country: None (occurrence: None)
  Receive Date: 20070904
  Receipt Date: 20070820
  Transmission Date: 20080405
  Serious: Yes (Death)
  Sender: FDA-Public Use
  Company Number: 2007001303

PATIENT
  Age: 43 Year
  Sex: Female

DRUGS (1)
  1. TARCEVA [Suspect]
     Indication: LUNG NEOPLASM MALIGNANT
     Dosage: 150 MG QD ORAL
     Route: 048
     Dates: start: 20070330, end: 20070530

REACTIONS (4)
  - CARDIOMEGALY [None]
  - DYSPNOEA [None]
  - NODULE [None]
  - PERICARDIAL EFFUSION [None]
